FAERS Safety Report 15585444 (Version 2)
Quarter: 2018Q4

REPORT INFORMATION
  Report Type: Report from Study
  Country: IT (occurrence: IT)
  Receive Date: 20181102
  Receipt Date: 20181105
  Transmission Date: 20190205
  Serious: Yes (Hospitalization, Other)
  Sender: FDA-Public Use
  Company Number: IT-PFIZER INC-2018447940

PATIENT
  Age: 52 Year
  Sex: Male

DRUGS (7)
  1. LYRICA [Concomitant]
     Active Substance: PREGABALIN
     Dosage: 2 DF, UNK
     Route: 048
  2. COUMADIN [Suspect]
     Active Substance: WARFARIN SODIUM
     Dosage: 30 DF, TOTAL
     Route: 048
     Dates: start: 20180912, end: 20180912
  3. TAVOR (LORAZEPAM) [Suspect]
     Active Substance: LORAZEPAM
     Dosage: 20 DF, TOTAL
     Route: 048
     Dates: start: 20180912, end: 20180912
  4. TAVOR (LORAZEPAM) [Suspect]
     Active Substance: LORAZEPAM
     Dosage: 30 DF, TOTAL
     Route: 048
     Dates: start: 20180912, end: 20180912
  5. MOMENXSIN 200 MG/30 MG COMPRESSE RIVESTITE CON FILM [Suspect]
     Active Substance: IBUPROFEN\PSEUDOEPHEDRINE HYDROCHLORIDE
     Dosage: 6 DF, TOTAL
     Route: 048
     Dates: start: 20180912, end: 20180912
  6. DEPALGOS [Suspect]
     Active Substance: ACETAMINOPHEN\OXYCODONE HYDROCHLORIDE
     Dosage: 14 DF, TOTAL
     Route: 048
     Dates: start: 20180912, end: 20180912
  7. TYSABRI [Concomitant]
     Active Substance: NATALIZUMAB
     Dosage: 1 DF, UNK
     Route: 041

REACTIONS (8)
  - Anaemia [Recovered/Resolved]
  - Hypotension [Recovered/Resolved]
  - Toxicity to various agents [Recovered/Resolved]
  - Tachycardia [Recovered/Resolved]
  - Coma [Recovered/Resolved]
  - Thrombocytopenia [Recovered/Resolved]
  - Drug abuse [Recovered/Resolved]
  - Sopor [Recovered/Resolved]

NARRATIVE: CASE EVENT DATE: 20180912
